FAERS Safety Report 24344695 (Version 1)
Quarter: 2024Q3

REPORT INFORMATION
  Report Type: Other
  Country: US (occurrence: US)
  Receive Date: 20240920
  Receipt Date: 20240920
  Transmission Date: 20241016
  Serious: No
  Sender: Alora Pharma
  Company Number: US-ACELLA PHARMACEUTICALS, LLC-2024ALO00112

PATIENT
  Sex: Male
  Weight: 79.819 kg

DRUGS (4)
  1. METHYLPHENIDATE HYDROCHLORIDE [Suspect]
     Active Substance: METHYLPHENIDATE HYDROCHLORIDE
     Indication: Attention deficit hyperactivity disorder
     Dosage: 108 MG (2 TABLETS), 1X/DAY, IN ADDITION TO 18 MG TABLET
     Route: 048
     Dates: start: 2017, end: 2017
  2. METHYLPHENIDATE HYDROCHLORIDE [Suspect]
     Active Substance: METHYLPHENIDATE HYDROCHLORIDE
     Dosage: 108 MG (2 TABLETS), 1X/DAY, IN ADDITION TO 18 MG TABLET
     Route: 048
  3. METHYLPHENIDATE HYDROCHLORIDE [Suspect]
     Active Substance: METHYLPHENIDATE HYDROCHLORIDE
     Indication: Attention deficit hyperactivity disorder
     Dosage: 18 MG, 1X/DAY (IN ADDITION TO TWO 54 MG TABLETS)
     Route: 048
     Dates: start: 2017, end: 2017
  4. METHYLPHENIDATE HYDROCHLORIDE [Suspect]
     Active Substance: METHYLPHENIDATE HYDROCHLORIDE
     Dosage: 18 MG, 1X/DAY (IN ADDITION TO TWO 54 MG TABLETS)
     Route: 048

REACTIONS (5)
  - Disturbance in attention [Recovered/Resolved]
  - Brain fog [Recovered/Resolved]
  - Therapeutic response changed [Recovered/Resolved]
  - Anxiety [Recovered/Resolved]
  - Product substitution issue [Recovered/Resolved]

NARRATIVE: CASE EVENT DATE: 20170101
